FAERS Safety Report 8962512 (Version 1)
Quarter: 2012Q4

REPORT INFORMATION
  Report Type: Spontaneous
  Country: US (occurrence: None)
  Receive Date: 20121205
  Receipt Date: 20121205
  Transmission Date: 20130627
  Serious: Yes (Other)
  Sender: FDA-Public Use
  Company Number: AUR-APL-2012-05132

PATIENT
  Age: 52 Year
  Sex: Female
  Weight: 71.44 kg

DRUGS (2)
  1. METOPROLOL (METOPROLOL) [Suspect]
     Indication: DRUG USE FOR UNKNOWN INDICATION
     Dosage: (25 mg, 2 in 1 D)
     Route: 048
  2. PAXIL [Suspect]
     Indication: DRUG USE FOR UNKNOWN INDICATION
     Route: 048

REACTIONS (24)
  - Hyperhidrosis [None]
  - Rhinorrhoea [None]
  - Otitis media acute [None]
  - Sinus headache [None]
  - Depression [None]
  - Dizziness [None]
  - Headache [None]
  - Weight increased [None]
  - Heart rate decreased [None]
  - Tobacco abuse [None]
  - Pain in extremity [None]
  - Neck pain [None]
  - Arthralgia [None]
  - Intervertebral disc space narrowing [None]
  - Musculoskeletal pain [None]
  - Lung disorder [None]
  - Pain [None]
  - Vomiting [None]
  - Treatment noncompliance [None]
  - Upper respiratory tract infection [None]
  - Cough [None]
  - Ear pain [None]
  - Fatigue [None]
  - Breath sounds abnormal [None]
